FAERS Safety Report 11097497 (Version 2)
Quarter: 2015Q3

REPORT INFORMATION
  Report Type: Spontaneous
  Country: US (occurrence: US)
  Receive Date: 20150507
  Receipt Date: 20150810
  Transmission Date: 20151125
  Serious: Yes (Other)
  Sender: FDA-Public Use
  Company Number: US-GLAXOSMITHKLINE-US2015059135

PATIENT
  Age: 79 Year
  Sex: Female

DRUGS (13)
  1. PRESERVISION [Concomitant]
     Active Substance: MINERALS\VITAMINS
  2. METOPROLOL [Concomitant]
     Active Substance: METOPROLOL
  3. ADVAIR DISKUS [Suspect]
     Active Substance: FLUTICASONE PROPIONATE\SALMETEROL XINAFOATE
     Indication: CHRONIC OBSTRUCTIVE PULMONARY DISEASE
     Dosage: 1 PUFF(S), BID
     Route: 055
  4. HYGROTON [Concomitant]
     Active Substance: CHLORTHALIDONE
  5. FISH OIL [Concomitant]
     Active Substance: FISH OIL
  6. PLAVIX [Concomitant]
     Active Substance: CLOPIDOGREL BISULFATE
  7. ALPHAGAN P [Concomitant]
     Active Substance: BRIMONIDINE TARTRATE
  8. SPIRIVA [Concomitant]
     Active Substance: TIOTROPIUM BROMIDE MONOHYDRATE
  9. LIPITOR [Concomitant]
     Active Substance: ATORVASTATIN CALCIUM
  10. SYNTHROID [Concomitant]
     Active Substance: LEVOTHYROXINE SODIUM
  11. ASPIRIN. [Concomitant]
     Active Substance: ASPIRIN
  12. ZOCOR [Concomitant]
     Active Substance: SIMVASTATIN
  13. LOSARTAN. [Concomitant]
     Active Substance: LOSARTAN

REACTIONS (17)
  - Myocardial infarction [Unknown]
  - Intraocular pressure test abnormal [Recovered/Resolved]
  - Arthritis [Unknown]
  - Visual impairment [Unknown]
  - Vitreous floaters [Unknown]
  - Condition aggravated [Unknown]
  - Cataract operation [Recovered/Resolved]
  - Bronchitis [Unknown]
  - Adverse event [Unknown]
  - Glaucoma [Unknown]
  - Intraocular pressure increased [Unknown]
  - Stent placement [Unknown]
  - Astigmatism [Unknown]
  - Macular degeneration [Unknown]
  - Myopia [Unknown]
  - Intraocular lens implant [Unknown]
  - Dry eye [Unknown]

NARRATIVE: CASE EVENT DATE: 20111018
